FAERS Safety Report 18423781 (Version 2)
Quarter: 2021Q1

REPORT INFORMATION
  Report Type: Spontaneous
  Country: US (occurrence: US)
  Receive Date: 20201024
  Receipt Date: 20210201
  Transmission Date: 20210419
  Serious: Yes (Hospitalization, Other)
  Sender: FDA-Public Use
  Company Number: NVSC2020US285425

PATIENT
  Age: 40 Year
  Sex: Female

DRUGS (6)
  1. ERGOCALCIFEROL. [Concomitant]
     Active Substance: ERGOCALCIFEROL
     Indication: PRODUCT USED FOR UNKNOWN INDICATION
     Dosage: 1.25 MG, QW (50,000 U)
     Route: 048
  2. ALBUTEROL. [Concomitant]
     Active Substance: ALBUTEROL
     Indication: PRODUCT USED FOR UNKNOWN INDICATION
     Dosage: 90 MCG/INH, 2 PUFFS QID PRN
     Route: 065
  3. GOSERELIN [Concomitant]
     Active Substance: GOSERELIN
     Indication: THERAPEUTIC OVARIAN SUPPRESSION
     Dosage: 3.6 MG
     Route: 065
  4. ZOMETA [Suspect]
     Active Substance: ZOLEDRONIC ACID
     Indication: BREAST CANCER
     Dosage: 4 MG PIGGY PACK IN 100 ML NS ONCE OVER 15 MIN
     Route: 042
     Dates: start: 20190322
  5. EXEMESTANE. [Concomitant]
     Active Substance: EXEMESTANE
     Indication: THERAPEUTIC OVARIAN SUPPRESSION
     Dosage: UNK
     Route: 065
  6. CALCIUM [Concomitant]
     Active Substance: CALCIUM
     Indication: PRODUCT USED FOR UNKNOWN INDICATION
     Dosage: 600+D 200U , BID
     Route: 048

REACTIONS (1)
  - Rhabdomyolysis [Recovered/Resolved]
